FAERS Safety Report 4586204-6 (Version None)
Quarter: 2005Q1

REPORT INFORMATION
  Report Type: 
  Country: None (occurrence: None)
  Receive Date: 20050125
  Receipt Date: 20041115
  Transmission Date: 20050727
  Serious: No
  Sender: FDA-Public Use
  Company Number: US_0411108286

PATIENT
  Age: 84 Year
  Sex: Female

DRUGS (2)
  1. FORTEO [Suspect]
     Dates: start: 20030728, end: 20041006
  2. INFLUENZA VACCINE [Concomitant]

REACTIONS (5)
  - BLOOD PARATHYROID HORMONE INCREASED [None]
  - BONE METABOLISM DISORDER [None]
  - PAIN [None]
  - SKIN DISCOLOURATION [None]
  - VITAMIN D DECREASED [None]
